FAERS Safety Report 12853157 (Version 1)
Quarter: 2016Q4

REPORT INFORMATION
  Report Type: Spontaneous
  Country: US (occurrence: US)
  Receive Date: 20161014
  Receipt Date: 20161014
  Transmission Date: 20170207
  Serious: Yes (Death)
  Sender: FDA-Public Use
  Company Number: None

PATIENT
  Age: 67 Year
  Sex: Female
  Weight: 45.45 kg

DRUGS (11)
  1. XARELTO [Concomitant]
     Active Substance: RIVAROXABAN
  2. MARINOL [Concomitant]
     Active Substance: DRONABINOL
  3. CARBOPLATIN. [Suspect]
     Active Substance: CARBOPLATIN
  4. SYNTHROID [Concomitant]
     Active Substance: LEVOTHYROXINE SODIUM
  5. PRADAXA [Concomitant]
     Active Substance: DABIGATRAN ETEXILATE MESYLATE
  6. VALIUM [Concomitant]
     Active Substance: DIAZEPAM
  7. MELANOTONIN [Concomitant]
  8. ATIVAN [Concomitant]
     Active Substance: LORAZEPAM
  9. AMILODIPINDE [Concomitant]
  10. EVEROLIMUS [Suspect]
     Active Substance: EVEROLIMUS
  11. COMPAZINE [Concomitant]
     Active Substance: PROCHLORPERAZINE MALEATE

REACTIONS (3)
  - Pain in extremity [None]
  - Dry skin [None]
  - Deep vein thrombosis [None]

NARRATIVE: CASE EVENT DATE: 20160730
